FAERS Safety Report 19820158 (Version 4)
Quarter: 2021Q4

REPORT INFORMATION
  Report Type: Spontaneous
  Country: PL (occurrence: PL)
  Receive Date: 20210913
  Receipt Date: 20211007
  Transmission Date: 20220303
  Serious: Yes (Hospitalization)
  Sender: FDA-Public Use
  Company Number: None

PATIENT
  Age: 42 Year
  Sex: Female
  Weight: 60 kg

DRUGS (3)
  1. ACETAMINOPHEN [Suspect]
     Active Substance: ACETAMINOPHEN
     Indication: Suicide attempt
     Dosage: UNK
     Route: 048
     Dates: start: 20210204, end: 20210204
  2. TRAMADOL HYDROCHLORIDE [Suspect]
     Active Substance: TRAMADOL HYDROCHLORIDE
     Indication: Suicide attempt
     Dosage: UNK
     Route: 048
     Dates: start: 20210204, end: 20210204
  3. METHYLPREDNISOLONE [Suspect]
     Active Substance: METHYLPREDNISOLONE
     Indication: Suicide attempt
     Dosage: UNK
     Route: 048
     Dates: start: 20210204, end: 20210204

REACTIONS (3)
  - Depression [Unknown]
  - Suicide attempt [Unknown]
  - Somnolence [Unknown]
